FAERS Safety Report 5635507-2 (Version None)
Quarter: 2008Q1

REPORT INFORMATION
  Report Type: 
  Country: None (occurrence: None)
  Receive Date: 20080222
  Receipt Date: 20080214
  Transmission Date: 20080703
  Serious: Yes (Other)
  Sender: FDA-Public Use
  Company Number: US-GENENTECH-256008

PATIENT

DRUGS (1)
  1. NUTROPIN [Suspect]
     Indication: TURNER'S SYNDROME

REACTIONS (1)
  - OSTEOCHONDROMA [None]
